FAERS Safety Report 7286229-6 (Version None)
Quarter: 2011Q1

REPORT INFORMATION
  Report Type: 
  Country: None (occurrence: None)
  Receive Date: 20110126
  Receipt Date: 20110111
  Transmission Date: 20110831
  Serious: Yes (Other)
  Sender: FDA-Public Use
  Company Number: AUR-APL-2011-00221

PATIENT
  Age: 37 Year
  Sex: Female

DRUGS (3)
  1. NEURONTIN [Suspect]
  2. LAMICTAL [Suspect]
     Indication: BIPOLAR DISORDER
     Dosage: 300MG-DAILY
     Dates: start: 20081008
  3. LAMOTRIGINE [Suspect]
     Indication: BIPOLAR DISORDER
     Dosage: 300MG-DAILY
     Dates: start: 20081008

REACTIONS (8)
  - AGITATION [None]
  - PAIN [None]
  - PARAESTHESIA [None]
  - LOSS OF CONSCIOUSNESS [None]
  - AMNESIA [None]
  - NIGHTMARE [None]
  - CLAUSTROPHOBIA [None]
  - SPONDYLITIS [None]
